FAERS Safety Report 8710202 (Version 2)
Quarter: 2013Q4

REPORT INFORMATION
  Report Type: Spontaneous
  Country: US (occurrence: US)
  Receive Date: 20120806
  Receipt Date: 20131101
  Transmission Date: 20140711
  Serious: No
  Sender: FDA-Public Use
  Company Number: US-009507513-1208USA001551

PATIENT
  Age: 18 Year
  Sex: Female
  Weight: 56.24 kg

DRUGS (1)
  1. IMPLANON [Suspect]
     Indication: CONTRACEPTION
     Dosage: UNK
     Route: 059
     Dates: start: 20090310

REACTIONS (4)
  - Dysmenorrhoea [Unknown]
  - Menstruation irregular [Unknown]
  - Menstruation delayed [Unknown]
  - Incorrect drug administration duration [Unknown]
